FAERS Safety Report 6076542-2 (Version None)
Quarter: 2009Q1

REPORT INFORMATION
  Report Type: 
  Country: None (occurrence: None)
  Receive Date: 20090211
  Receipt Date: 20090126
  Transmission Date: 20090719
  Serious: Yes (Death)
  Sender: FDA-Public Use
  Company Number: AE 2009-017

PATIENT
  Age: 86 Year
  Sex: Female

DRUGS (1)
  1. FAZACLO ODT [Suspect]
     Dosage: 37.5 MG DAILY PO
     Route: 048
     Dates: start: 20080407, end: 20090121

REACTIONS (1)
  - DEATH [None]
